FAERS Safety Report 25478034 (Version 2)
Quarter: 2025Q3

REPORT INFORMATION
  Report Type: Report from Study
  Country: US (occurrence: US)
  Receive Date: 20250625
  Receipt Date: 20250717
  Transmission Date: 20251020
  Serious: No
  Sender: CSL BEHRING
  Company Number: US-BEH-2025209897

PATIENT
  Age: 51 Year
  Sex: Female
  Weight: 56.689 kg

DRUGS (1)
  1. ZEMAIRA [Suspect]
     Active Substance: .ALPHA.1-PROTEINASE INHIBITOR HUMAN
     Indication: Alpha-1 antitrypsin deficiency
     Dosage: UNK, QW
     Route: 042

REACTIONS (3)
  - Headache [Not Recovered/Not Resolved]
  - Headache [Recovered/Resolved]
  - Product dose omission in error [Not Recovered/Not Resolved]

NARRATIVE: CASE EVENT DATE: 20250521
